FAERS Safety Report 10004914 (Version 1)
Quarter: 2014Q1

REPORT INFORMATION
  Report Type: Spontaneous
  Country: DE (occurrence: DE)
  Receive Date: 20140312
  Receipt Date: 20140312
  Transmission Date: 20141002
  Serious: Yes (Congenital Anomaly, Other)
  Sender: FDA-Public Use
  Company Number: DE-MYLANLABS-2014S1004720

PATIENT
  Age: 1 Day
  Sex: Female
  Weight: 3.28 kg

DRUGS (3)
  1. CITALOPRAM [Suspect]
     Indication: DEPRESSION
     Dosage: 40 [MG/D ]/ DOSE REDUCTION IN PREGNANCY. 20 MG ALREADY IN WEEK 6 OR 7
     Route: 064
  2. FOLIC ACID [Concomitant]
     Indication: PROPHYLAXIS OF NEURAL TUBE DEFECT
     Route: 064
  3. THYMIAN [Concomitant]
     Indication: COUGH
     Route: 064

REACTIONS (3)
  - Motor developmental delay [Unknown]
  - Dermoid cyst [Not Recovered/Not Resolved]
  - Exposure during pregnancy [Recovered/Resolved]
